FAERS Safety Report 7516260-4 (Version None)
Quarter: 2011Q2

REPORT INFORMATION
  Report Type: 
  Country: None (occurrence: None)
  Receive Date: 20110601
  Receipt Date: 20110516
  Transmission Date: 20111010
  Serious: No
  Sender: FDA-Public Use
  Company Number: US-B.I. PHARMACEUTICALS,INC./RIDGEFIELD-2011-BP-13264BP

PATIENT
  Sex: Female

DRUGS (5)
  1. SIMVASTATIN [Concomitant]
     Indication: DYSLIPIDAEMIA
     Route: 048
  2. COREG [Concomitant]
     Indication: HYPERTENSION
     Route: 048
  3. AMITRIPTYLINE HCL [Concomitant]
     Indication: MIGRAINE
     Route: 048
  4. SPIRIVA [Suspect]
     Indication: OBSTRUCTIVE AIRWAYS DISORDER
     Dosage: 18 MCG
     Route: 055
     Dates: start: 20110428
  5. TRILIPIX [Suspect]
     Indication: DYSLIPIDAEMIA
     Route: 048
     Dates: start: 20110428, end: 20110509

REACTIONS (3)
  - COUGH [None]
  - RHINORRHOEA [None]
  - DRY MOUTH [None]
